FAERS Safety Report 9693126 (Version 1)
Quarter: 2013Q4

REPORT INFORMATION
  Report Type: Report from Study
  Country: US (occurrence: US)
  Receive Date: 20131118
  Receipt Date: 20131118
  Transmission Date: 20140711
  Serious: Yes (Other)
  Sender: FDA-Public Use
  Company Number: US-ROCHE-1302677

PATIENT
  Age: 1 Year
  Sex: Female
  Weight: 8.1 kg

DRUGS (5)
  1. DIAZEPAM [Suspect]
     Indication: PRODUCT USED FOR UNKNOWN INDICATION
     Route: 065
  2. BACTRIM [Concomitant]
     Route: 065
  3. ZANTAC [Concomitant]
  4. POLYVISOL [Concomitant]
  5. ZYRTEC [Concomitant]

REACTIONS (5)
  - Breath holding [Unknown]
  - Cyanosis [Unknown]
  - Hyporeflexia [Unknown]
  - Weight gain poor [Unknown]
  - Growth retardation [Unknown]
